FAERS Safety Report 6120495-5 (Version None)
Quarter: 2009Q1

REPORT INFORMATION
  Report Type: 
  Country: None (occurrence: None)
  Receive Date: 20090317
  Receipt Date: 20090309
  Transmission Date: 20090719
  Serious: Yes (Hospitalization)
  Sender: FDA-Public Use
  Company Number: TR-BRISTOL-MYERS SQUIBB COMPANY-14545222

PATIENT

DRUGS (1)
  1. METFORMIN HCL [Suspect]

REACTIONS (3)
  - COAGULATION FACTOR DECREASED [None]
  - COAGULATION TIME SHORTENED [None]
  - DRUG TOXICITY [None]
